FAERS Safety Report 8396957-7 (Version None)
Quarter: 2012Q2

REPORT INFORMATION
  Report Type: 
  Country: None (occurrence: None)
  Receive Date: 20120530
  Receipt Date: 20120516
  Transmission Date: 20120825
  Serious: No
  Sender: FDA-Public Use
  Company Number: US-ASTRAZENECA-2012SE31646

PATIENT
  Sex: Female
  Weight: 69.9 kg

DRUGS (4)
  1. BLOOD PRESSURE MEDICATION [Concomitant]
     Indication: HYPERTENSION
  2. ZOMIG [Suspect]
     Indication: MIGRAINE
     Route: 048
  3. IMITREX [Suspect]
  4. SUMATRIPTAN [Suspect]

REACTIONS (2)
  - MIGRAINE [None]
  - OFF LABEL USE [None]
